FAERS Safety Report 14020048 (Version 1)
Quarter: 2017Q3

REPORT INFORMATION
  Report Type: Spontaneous
  Country: US (occurrence: US)
  Receive Date: 20170928
  Receipt Date: 20170928
  Transmission Date: 20171128
  Serious: No
  Sender: FDA-Public Use
  Company Number: US-ALLERGAN-1727442US

PATIENT
  Sex: Female
  Weight: 92.97 kg

DRUGS (4)
  1. RECTIV [Suspect]
     Active Substance: NITROGLYCERIN
     Indication: ANAL FISSURE
     Dosage: UNK
     Route: 054
     Dates: start: 20170623, end: 20170623
  2. LOSARTAN. [Concomitant]
     Active Substance: LOSARTAN
     Indication: HYPERTENSION
     Dosage: UNK
     Route: 065
  3. ZIAC [Concomitant]
     Active Substance: BISOPROLOL FUMARATE\HYDROCHLOROTHIAZIDE
     Indication: HYPERTENSION
     Route: 065
  4. LEXAPRO [Concomitant]
     Active Substance: ESCITALOPRAM OXALATE
     Indication: PRODUCT USED FOR UNKNOWN INDICATION
     Dosage: UNK
     Route: 065

REACTIONS (6)
  - Vision blurred [Unknown]
  - Drug hypersensitivity [Unknown]
  - Malaise [Unknown]
  - Rash [Unknown]
  - Migraine [Unknown]
  - Dizziness [Unknown]
